FAERS Safety Report 25318235 (Version 1)
Quarter: 2025Q2

REPORT INFORMATION
  Report Type: Report from Study
  Country: NL (occurrence: NL)
  Receive Date: 20250515
  Receipt Date: 20250515
  Transmission Date: 20250717
  Serious: Yes (Hospitalization)
  Sender: CELLTRION
  Company Number: NL-AMGEN-NLDSL2024217536

PATIENT

DRUGS (2)
  1. RITUXIMAB [Suspect]
     Active Substance: RITUXIMAB
     Indication: Product used for unknown indication
     Route: 065
  2. NPLATE [Suspect]
     Active Substance: ROMIPLOSTIM
     Indication: Immune thrombocytopenia
     Dosage: 500 MICROGRAM, QWK (UNIT=VIAL - LYOPHILIZED)
     Route: 058

REACTIONS (3)
  - Unevaluable event [Unknown]
  - Feeling drunk [Unknown]
  - Dizziness [Unknown]

NARRATIVE: CASE EVENT DATE: 20241017
